FAERS Safety Report 8580844-5 (Version None)
Quarter: 2012Q3

REPORT INFORMATION
  Report Type: 
  Country: None (occurrence: None)
  Receive Date: 20120726
  Receipt Date: 20120705
  Transmission Date: 20120928
  Serious: Yes (Hospitalization)
  Sender: FDA-Public Use
  Company Number: 2135225-2012-00078

PATIENT
  Age: 68 Year
  Sex: Female

DRUGS (1)
  1. AETOXISCLEROL [Suspect]
     Indication: SCLEROTHERAPY
     Dosage: 1 DAY
     Dates: start: 20120417

REACTIONS (2)
  - VENOUS THROMBOSIS [None]
  - PULMONARY EMBOLISM [None]
